FAERS Safety Report 4496597-6 (Version None)
Quarter: 2004Q4

REPORT INFORMATION
  Report Type: 
  Country: None (occurrence: None)
  Receive Date: 20041109
  Receipt Date: 20041028
  Transmission Date: 20050328
  Serious: Yes (Other)
  Sender: FDA-Public Use
  Company Number: 200418353US

PATIENT
  Age: 53 Year
  Sex: Female

DRUGS (1)
  1. AMARYL [Suspect]
     Dosage: DOSE: NOT PROVIDED

REACTIONS (5)
  - BLINDNESS [None]
  - BLOOD GLUCOSE DECREASED [None]
  - DIZZINESS [None]
  - EYE HAEMORRHAGE [None]
  - TREMOR [None]
